FAERS Safety Report 8468711 (Version 3)
Quarter: 2013Q4

REPORT INFORMATION
  Report Type: Spontaneous
  Country: RU (occurrence: RU)
  Receive Date: 20120320
  Receipt Date: 20131227
  Transmission Date: 20140711
  Serious: Yes (Other)
  Sender: FDA-Public Use
  Company Number: PHHY2012RU022460

PATIENT
  Age: 59 Year
  Sex: Male

DRUGS (4)
  1. RASILEZ [Suspect]
     Indication: HYPERTENSION
     Dosage: 150 MG, UNK
     Route: 048
     Dates: start: 200910, end: 201203
  2. HEPTRAL [Concomitant]
     Indication: HEPATIC STEATOSIS
     Dosage: 1 DF, BID
     Dates: start: 20120110, end: 20120306
  3. PARIET [Concomitant]
     Indication: GASTRITIS EROSIVE
     Dosage: 20 MG, UNK
     Dates: start: 20111014, end: 20120202
  4. ESSENTIALE FORTE N [Concomitant]
     Indication: HEPATIC STEATOSIS

REACTIONS (2)
  - Haemorrhagic vasculitis [Not Recovered/Not Resolved]
  - Vasculitis [Not Recovered/Not Resolved]
